FAERS Safety Report 6446707-6 (Version None)
Quarter: 2009Q4

REPORT INFORMATION
  Report Type: 
  Country: None (occurrence: None)
  Receive Date: 20091119
  Receipt Date: 20091117
  Transmission Date: 20100525
  Serious: Yes (Life-Threatening, Hospitalization)
  Sender: FDA-Public Use
  Company Number: B0600793A

PATIENT
  Sex: Female

DRUGS (8)
  1. RELENZA [Suspect]
     Indication: INFLUENZA
     Dosage: 10MG TWICE PER DAY
     Route: 055
     Dates: start: 20091026, end: 20091026
  2. HUSCODE [Concomitant]
     Indication: ANTITUSSIVE THERAPY
     Route: 048
     Dates: start: 20091026
  3. SENEGA [Concomitant]
     Indication: ANTITUSSIVE THERAPY
     Route: 048
     Dates: start: 20091026
  4. BROCIN [Concomitant]
     Indication: ANTITUSSIVE THERAPY
     Route: 048
     Dates: start: 20091026
  5. HOKUNALIN [Concomitant]
     Indication: ANTITUSSIVE THERAPY
     Dosage: 2MG PER DAY
     Route: 062
     Dates: start: 20091026
  6. CALONAL [Concomitant]
     Indication: ANTIPYRESIS
     Route: 048
     Dates: start: 20091025, end: 20091027
  7. TRANSAMIN [Concomitant]
     Indication: OROPHARYNGEAL PAIN
     Dosage: 250MG THREE TIMES PER DAY
     Route: 048
     Dates: start: 20091024, end: 20091025
  8. RESPLEN [Concomitant]
     Indication: ANTITUSSIVE THERAPY
     Dosage: 20MG THREE TIMES PER DAY
     Route: 048
     Dates: start: 20091024, end: 20091025

REACTIONS (12)
  - CIRCULATORY COLLAPSE [None]
  - COUGH [None]
  - DIZZINESS [None]
  - DYSPHORIA [None]
  - DYSPNOEA [None]
  - FACE OEDEMA [None]
  - HYPOTENSION [None]
  - LOSS OF CONSCIOUSNESS [None]
  - PALLOR [None]
  - PERIPHERAL COLDNESS [None]
  - PHARYNGEAL OEDEMA [None]
  - SHOCK [None]
